FAERS Safety Report 7927793-0 (Version None)
Quarter: 2011Q4

REPORT INFORMATION
  Report Type: 
  Country: None (occurrence: None)
  Receive Date: 20111118
  Receipt Date: 20111114
  Transmission Date: 20120403
  Serious: Yes (Other)
  Sender: FDA-Public Use
  Company Number: US-SANOFI-AVENTIS-2011SA070235

PATIENT
  Age: 75 Year
  Sex: Female
  Weight: 99.79 kg

DRUGS (7)
  1. NEURONTIN [Concomitant]
  2. SOLOSTAR [Suspect]
     Dates: end: 20111001
  3. FUROSEMIDE [Concomitant]
  4. APIDRA [Suspect]
     Dosage: 42 UNITS DAILY (8-14, 20 UNITS)
     Route: 058
  5. TIZANIDINE HCL [Concomitant]
     Indication: MUSCLE SPASMS
  6. LISINOPRIL [Concomitant]
  7. LYRICA [Concomitant]

REACTIONS (3)
  - CATARACT OPERATION [None]
  - VISUAL IMPAIRMENT [None]
  - BLOOD GLUCOSE ABNORMAL [None]
